FAERS Safety Report 4670395-2 (Version None)
Quarter: 2005Q2

REPORT INFORMATION
  Report Type: 
  Country: None (occurrence: None)
  Receive Date: 20050523
  Receipt Date: 20050518
  Transmission Date: 20051028
  Serious: Yes (Disabling)
  Sender: FDA-Public Use
  Company Number: GB-MERCK-0505GBR00148

PATIENT
  Age: 78 Year
  Sex: Male
  Weight: 82 kg

DRUGS (6)
  1. FOSAMAX [Suspect]
     Indication: BONE DISORDER
     Route: 048
     Dates: start: 20050121, end: 20050211
  2. OMEPRAZOLE [Concomitant]
     Indication: DYSPEPSIA
     Route: 048
     Dates: start: 20040510
  3. PREDNISOLONE [Concomitant]
     Indication: POLYMYALGIA
     Route: 048
     Dates: start: 20031029
  4. PIZOTYLINE [Concomitant]
     Indication: MIGRAINE
     Route: 048
     Dates: start: 20041025
  5. CALCIUM CARBONATE AND CHOLECALCIFEROL [Concomitant]
     Indication: BONE DISORDER
     Route: 048
     Dates: start: 20041122
  6. ACETAMINOPHEN [Concomitant]
     Indication: HEADACHE
     Route: 048
     Dates: start: 20040223

REACTIONS (2)
  - DEAFNESS [None]
  - TINNITUS [None]
